FAERS Safety Report 18612699 (Version 3)
Quarter: 2021Q1

REPORT INFORMATION
  Report Type: Spontaneous
  Country: FR (occurrence: FR)
  Receive Date: 20201214
  Receipt Date: 20210202
  Transmission Date: 20210419
  Serious: Yes (Hospitalization, Other)
  Sender: FDA-Public Use
  Company Number: FR-FERRINGPH-2020FE08797

PATIENT
  Age: 32 Year
  Sex: Female

DRUGS (6)
  1. MENOPUR [Suspect]
     Active Substance: FOLLITROPIN\LUTEINIZING HORMONE
     Indication: ASSISTED REPRODUCTIVE TECHNOLOGY
     Dosage: 300 IU, 1 TIME DAILY
     Route: 058
     Dates: start: 20201026, end: 20201105
  2. SYNAREL [Suspect]
     Active Substance: NAFARELIN ACETATE
     Dosage: 2 DF
     Route: 045
     Dates: start: 20200925
  3. OVITRELLE [Suspect]
     Active Substance: CHORIOGONADOTROPIN ALFA
     Dosage: 1 DF, ONCE/SINGLE
     Route: 058
     Dates: start: 20201014, end: 20201014
  4. SYNAREL [Suspect]
     Active Substance: NAFARELIN ACETATE
     Indication: ASSISTED REPRODUCTIVE TECHNOLOGY
     Dosage: UNK
     Route: 065
     Dates: start: 202010
  5. VISANNE [Suspect]
     Active Substance: DIENOGEST
     Indication: ENDOMETRIOSIS
     Dosage: 2 MG, DAILY
     Route: 048
     Dates: start: 202002, end: 202009
  6. OVITRELLE [Suspect]
     Active Substance: CHORIOGONADOTROPIN ALFA
     Indication: ASSISTED REPRODUCTIVE TECHNOLOGY
     Dosage: 1 DF, ONCE/SINGLE
     Route: 058
     Dates: start: 20201106, end: 20201106

REACTIONS (4)
  - Meningioma [Not Recovered/Not Resolved]
  - Partial seizures [Recovered/Resolved]
  - Partial seizures [Recovered/Resolved with Sequelae]
  - Partial seizures [Recovered/Resolved]

NARRATIVE: CASE EVENT DATE: 202010
